FAERS Safety Report 8142528-7 (Version None)
Quarter: 2012Q1

REPORT INFORMATION
  Report Type: 
  Country: None (occurrence: None)
  Receive Date: 20120216
  Receipt Date: 20111209
  Transmission Date: 20120608
  Serious: No
  Sender: FDA-Public Use
  Company Number: US-ASTRAZENECA-2011SE74678

PATIENT

DRUGS (2)
  1. LISINOPRIL [Concomitant]
  2. BRILINTA [Suspect]
     Route: 048

REACTIONS (2)
  - SWELLING FACE [None]
  - HEADACHE [None]
